FAERS Safety Report 24595346 (Version 1)
Quarter: 2024Q4

REPORT INFORMATION
  Report Type: Report from Study
  Country: US (occurrence: US)
  Receive Date: 20241109
  Receipt Date: 20241109
  Transmission Date: 20250114
  Serious: Yes (Other)
  Sender: ABBVIE
  Company Number: US-ABBVIE-5988758

PATIENT
  Age: 49 Year
  Sex: Female

DRUGS (1)
  1. CREON [Suspect]
     Active Substance: PANCRELIPASE AMYLASE\PANCRELIPASE LIPASE\PANCRELIPASE PROTEASE
     Indication: Product used for unknown indication
     Route: 048
     Dates: start: 20190101

REACTIONS (11)
  - Teratoma [Unknown]
  - Blepharospasm [Unknown]
  - Nerve compression [Unknown]
  - Bone pain [Unknown]
  - Cardiac murmur [Unknown]
  - Abdominal distension [Unknown]
  - Joint dislocation [Unknown]
  - Pain [Recovered/Resolved]
  - Abdominal distension [Recovered/Resolved]
  - Costochondral separation [Unknown]
  - Arthralgia [Not Recovered/Not Resolved]

NARRATIVE: CASE EVENT DATE: 20241101
